FAERS Safety Report 6782954-1 (Version None)
Quarter: 2010Q2

REPORT INFORMATION
  Report Type: 
  Country: None (occurrence: None)
  Receive Date: 20100622
  Receipt Date: 20100609
  Transmission Date: 20101027
  Serious: Yes (Life-Threatening)
  Sender: FDA-Public Use
  Company Number: US-BAYER-201028556GPV

PATIENT

DRUGS (2)
  1. SORAFENIB [Suspect]
     Indication: NEUROENDOCRINE TUMOUR
  2. EVEROLIMUS [Suspect]
     Indication: NEUROENDOCRINE TUMOUR
     Route: 048

REACTIONS (1)
  - HYPOPHOSPHATAEMIA [None]
